FAERS Safety Report 9485111 (Version 1)
Quarter: 2013Q3

REPORT INFORMATION
  Report Type: Spontaneous
  Country: US (occurrence: US)
  Receive Date: 20130828
  Receipt Date: 20130828
  Transmission Date: 20140515
  Serious: No
  Sender: FDA-Public Use
  Company Number: US-ABBOTT-13P-163-1109751-00

PATIENT
  Age: 54 Year
  Sex: Male
  Weight: 104.42 kg

DRUGS (2)
  1. ANDROGEL [Suspect]
     Indication: BLOOD TESTOSTERONE DECREASED
     Route: 061
     Dates: start: 201301, end: 201301
  2. TESTOSTERONE INJECTABLE [Suspect]
     Indication: BLOOD TESTOSTERONE DECREASED
     Route: 030
     Dates: start: 201210, end: 201212

REACTIONS (3)
  - Weight increased [Not Recovered/Not Resolved]
  - Drug ineffective [Not Recovered/Not Resolved]
  - Libido decreased [Not Recovered/Not Resolved]
